FAERS Safety Report 8960747 (Version 1)
Quarter: 2012Q4

REPORT INFORMATION
  Report Type: Spontaneous
  Country: US (occurrence: None)
  Receive Date: 20121211
  Receipt Date: 20121211
  Transmission Date: 20130627
  Serious: Yes (Life-Threatening)
  Sender: FDA-Public Use
  Company Number: None

PATIENT
  Age: 54 Year
  Sex: Female

DRUGS (1)
  1. ENBREL [Suspect]
     Indication: PSORIASIS
     Dosage: 50 mg qw SQ
     Route: 058
     Dates: start: 20121206, end: 20121206

REACTIONS (5)
  - Pain [None]
  - Throat tightness [None]
  - Dyspnoea [None]
  - Lip swelling [None]
  - Lip blister [None]
